FAERS Safety Report 4462135-7 (Version None)
Quarter: 2004Q3

REPORT INFORMATION
  Report Type: 
  Country: None (occurrence: None)
  Receive Date: 20040927
  Receipt Date: 20040927
  Transmission Date: 20050211
  Serious: Yes (Death)
  Sender: FDA-Public Use
  Company Number: None

PATIENT
  Age: 73 Year
  Sex: Male
  Weight: 59.1 kg

DRUGS (4)
  1. ALTEPLASE 100MG GENENTECH [Suspect]
     Indication: PERIPHERAL ISCHAEMIA
     Dosage: 1MG HOUR INTRA-ARTERIAL
     Route: 013
     Dates: start: 20040522, end: 20040523
  2. HEPARIN [Suspect]
     Indication: PERIPHERAL ISCHAEMIA
     Dosage: 300 UNITS HOUR INTRA-ARTERIAL
     Route: 013
     Dates: start: 20040522, end: 20040523
  3. CLOPIDOGREL [Concomitant]
  4. ASPIRIN [Concomitant]

REACTIONS (4)
  - ABDOMINAL PAIN [None]
  - HEART RATE DECREASED [None]
  - HYPOTENSION [None]
  - RETROPERITONEAL HAEMORRHAGE [None]
